FAERS Safety Report 8138941-4 (Version None)
Quarter: 2012Q1

REPORT INFORMATION
  Report Type: 
  Country: None (occurrence: None)
  Receive Date: 20120215
  Receipt Date: 20120113
  Transmission Date: 20120608
  Serious: Yes (Life-Threatening, Other)
  Sender: FDA-Public Use
  Company Number: US-BAYER-US-2007-030511

PATIENT
  Age: 28 Year
  Sex: Female

DRUGS (7)
  1. BETASERON [Suspect]
     Dosage: UNK
     Route: 058
     Dates: start: 20090220, end: 20100301
  2. BETASERON [Suspect]
     Dosage: BETAJECT
     Route: 058
     Dates: start: 20100918
  3. RESTORIL [Concomitant]
  4. ALCOWIPES [Suspect]
  5. VICODIN [Concomitant]
  6. NAPROXEN (ALEVE) [Concomitant]
  7. BETASERON [Suspect]
     Indication: RELAPSING-REMITTING MULTIPLE SCLEROSIS
     Dosage: 8 MIU, EVERY 2D
     Route: 058
     Dates: start: 20051104

REACTIONS (18)
  - INJECTION SITE HAEMATOMA [None]
  - FATIGUE [None]
  - INJECTION SITE ERYTHEMA [None]
  - INJECTION SITE PAIN [None]
  - INJURY [None]
  - ANHEDONIA [None]
  - QUALITY OF LIFE DECREASED [None]
  - INJECTION SITE MASS [None]
  - INSOMNIA [None]
  - DEFORMITY [None]
  - PYREXIA [None]
  - GENERAL PHYSICAL HEALTH DETERIORATION [None]
  - INJECTION SITE INFECTION [None]
  - INJECTION SITE SWELLING [None]
  - GAIT DISTURBANCE [None]
  - EMOTIONAL DISTRESS [None]
  - ANXIETY [None]
  - PAIN [None]
